FAERS Safety Report 9419474 (Version 2)
Quarter: 2013Q3

REPORT INFORMATION
  Report Type: Spontaneous
  Country: US (occurrence: US)
  Receive Date: 20130725
  Receipt Date: 20130731
  Transmission Date: 20140515
  Serious: Yes (Other)
  Sender: FDA-Public Use
  Company Number: US-NOVOPROD-383323

PATIENT
  Age: 7 Year
  Sex: Male

DRUGS (1)
  1. NOVOLOG FLEXPEN [Suspect]
     Indication: PRODUCT USED FOR UNKNOWN INDICATION
     Dosage: UNKNOWN
     Route: 058
     Dates: start: 20130715, end: 20130715

REACTIONS (3)
  - Suspected transmission of an infectious agent via product [Not Recovered/Not Resolved]
  - Laceration [Recovered/Resolved]
  - Injury associated with device [Recovered/Resolved]
